FAERS Safety Report 23578965 (Version 1)
Quarter: 2024Q1

REPORT INFORMATION
  Report Type: Spontaneous
  Country: FR (occurrence: FR)
  Receive Date: 20240229
  Receipt Date: 20240229
  Transmission Date: 20240410
  Serious: Yes (Life-Threatening)
  Sender: FDA-Public Use
  Company Number: None

PATIENT
  Age: 89 Year
  Sex: Male

DRUGS (11)
  1. PAROXETINE [Suspect]
     Active Substance: PAROXETINE
     Indication: Mental disorder
     Dosage: PAROXETINE BASE
     Route: 048
     Dates: end: 20231214
  2. TAHOR [Concomitant]
     Active Substance: ATORVASTATIN CALCIUM
     Indication: Product used for unknown indication
     Route: 048
     Dates: end: 20231214
  3. POLYETHYLENE GLYCOL 4000 [Concomitant]
     Active Substance: POLYETHYLENE GLYCOL 4000
     Indication: Product used for unknown indication
     Route: 048
     Dates: end: 20231214
  4. POTASSIUM CHLORIDE [Concomitant]
     Active Substance: POTASSIUM CHLORIDE
     Indication: Product used for unknown indication
     Route: 048
     Dates: end: 20231214
  5. BISOPROLOL FUMARATE [Concomitant]
     Active Substance: BISOPROLOL FUMARATE
     Indication: Product used for unknown indication
     Route: 048
     Dates: end: 20231214
  6. ELIQUIS [Interacting]
     Active Substance: APIXABAN
     Indication: Atrial flutter
     Route: 048
     Dates: start: 2009, end: 20231212
  7. ZOPICLONE [Concomitant]
     Active Substance: ZOPICLONE
     Indication: Product used for unknown indication
     Route: 048
     Dates: end: 20231214
  8. OXYCONTIN [Concomitant]
     Active Substance: OXYCODONE HYDROCHLORIDE
     Indication: Product used for unknown indication
     Route: 048
     Dates: end: 20231214
  9. DOLIPRANE [Concomitant]
     Active Substance: ACETAMINOPHEN
     Indication: Product used for unknown indication
     Dosage: TIME INTERVAL: 1 AS NECESSARY
     Route: 048
     Dates: end: 20231214
  10. FUROSEMIDE [Concomitant]
     Active Substance: FUROSEMIDE
     Indication: Product used for unknown indication
     Route: 048
     Dates: end: 20231214
  11. ALLOPURINOL [Concomitant]
     Active Substance: ALLOPURINOL
     Indication: Product used for unknown indication
     Route: 048
     Dates: end: 20231214

REACTIONS (3)
  - Drug interaction [Recovering/Resolving]
  - Hepatic haemorrhage [Recovering/Resolving]
  - Splenic haemorrhage [Recovering/Resolving]

NARRATIVE: CASE EVENT DATE: 20231212
